FAERS Safety Report 17673034 (Version 6)
Quarter: 2020Q2

REPORT INFORMATION
  Report Type: Spontaneous
  Country: IT (occurrence: IT)
  Receive Date: 20200416
  Receipt Date: 20200529
  Transmission Date: 20200713
  Serious: Yes (Death, Hospitalization)
  Sender: FDA-Public Use
  Company Number: IT-BIOGEN-2020BI00861271

PATIENT
  Age: 64 Year
  Sex: Male

DRUGS (1)
  1. TECFIDERA [Suspect]
     Active Substance: DIMETHYL FUMARATE
     Indication: SECONDARY PROGRESSIVE MULTIPLE SCLEROSIS
     Route: 048
     Dates: start: 201510, end: 20200313

REACTIONS (9)
  - Pneumonia viral [Fatal]
  - Depression [Unknown]
  - Cerebrovascular disorder [Unknown]
  - COVID-19 pneumonia [Fatal]
  - Respiratory failure [Fatal]
  - Transient ischaemic attack [Unknown]
  - Off label use [Unknown]
  - COVID-19 [Fatal]
  - Hypertension [Unknown]

NARRATIVE: CASE EVENT DATE: 201510
